FAERS Safety Report 22635942 (Version 1)
Quarter: 2023Q2

REPORT INFORMATION
  Report Type: Spontaneous
  Country: US (occurrence: None)
  Receive Date: 20230623
  Receipt Date: 20230623
  Transmission Date: 20230722
  Serious: No
  Sender: FDA-Public Use
  Company Number: 2023A145268

PATIENT
  Age: 77 Year
  Sex: Female

DRUGS (1)
  1. PULMICORT FLEXHALER [Suspect]
     Active Substance: BUDESONIDE
     Dosage: 180, UNKNOWN UNKNOWN
     Route: 055

REACTIONS (3)
  - Vocal cord disorder [Unknown]
  - Dysphonia [Unknown]
  - Device use issue [Unknown]

NARRATIVE: CASE EVENT DATE: 20230620
